FAERS Safety Report 6688816-2 (Version None)
Quarter: 2010Q2

REPORT INFORMATION
  Report Type: 
  Country: None (occurrence: None)
  Receive Date: 20100420
  Receipt Date: 20100127
  Transmission Date: 20101027
  Serious: Yes (Congenital Anomaly)
  Sender: FDA-Public Use
  Company Number: ZA-BRISTOL-MYERS SQUIBB COMPANY-14206973

PATIENT
  Age: 11 Day
  Sex: Male
  Weight: 3 kg

DRUGS (4)
  1. EFAVIRENZ TABS 600 MG [Suspect]
     Indication: HIV INFECTION
     Route: 064
  2. LAMIVUDINE [Concomitant]
     Route: 064
  3. ZIDOVUDINE [Concomitant]
     Route: 064
  4. SULFAMETHOXAZOLE AND TRIMETHOPRIM [Concomitant]
     Route: 064

REACTIONS (2)
  - POLYDACTYLY [None]
  - PREGNANCY [None]
